FAERS Safety Report 4796862-9 (Version None)
Quarter: 2005Q4

REPORT INFORMATION
  Report Type: 
  Country: None (occurrence: None)
  Receive Date: 20051011
  Receipt Date: 20051011
  Transmission Date: 20060501
  Serious: Yes (Hospitalization)
  Sender: FDA-Public Use
  Company Number: None

PATIENT
  Age: 28 Year
  Sex: Female
  Weight: 53 kg

DRUGS (7)
  1. OXCARBAZEPINE [Suspect]
     Indication: CONVULSION
     Dosage: PO
     Route: 048
     Dates: start: 20050201, end: 20050727
  2. ATORVASTATIN [Concomitant]
  3. CACLIUM [Concomitant]
  4. GLUCOPHAGE [Concomitant]
  5. ZIPRASIDONE [Concomitant]
  6. ALENDRONATE [Concomitant]
  7. GUAIFENESIN [Concomitant]

REACTIONS (3)
  - HYPONATRAEMIA [None]
  - NAUSEA [None]
  - VOMITING [None]
